FAERS Safety Report 13648303 (Version 19)
Quarter: 2018Q2

REPORT INFORMATION
  Report Type: Spontaneous
  Country: US (occurrence: US)
  Receive Date: 20170613
  Receipt Date: 20180522
  Transmission Date: 20180711
  Serious: Yes (Hospitalization, Other)
  Sender: FDA-Public Use
  Company Number: US-ELI_LILLY_AND_COMPANY-US201706002321

PATIENT
  Age: 69 Year
  Sex: Female
  Weight: 66 kg

DRUGS (12)
  1. ORENITRAM [Suspect]
     Active Substance: TREPROSTINIL
     Dosage: 1.375 MG, UNKNOWN
     Route: 048
  2. AMBRISENTAN [Suspect]
     Active Substance: AMBRISENTAN
     Indication: PRODUCT USED FOR UNKNOWN INDICATION
     Dosage: 10 MG, DAILY
     Route: 065
     Dates: start: 20140804
  3. AMBRISENTAN [Suspect]
     Active Substance: AMBRISENTAN
     Dosage: 10 MG, DAILY
     Route: 065
  4. ORENITRAM [Suspect]
     Active Substance: TREPROSTINIL
     Dosage: 2.175 MG, UNKNOWN
     Route: 048
  5. ORENITRAM [Suspect]
     Active Substance: TREPROSTINIL
     Dosage: 2.375 MG, BID
     Route: 048
  6. ORENITRAM [Suspect]
     Active Substance: TREPROSTINIL
     Dosage: 2.5 MG, UNK
  7. ADCIRCA [Suspect]
     Active Substance: TADALAFIL
     Indication: PULMONARY ARTERIAL HYPERTENSION
     Dosage: 2.5 MG, BID
     Route: 048
     Dates: start: 20170509
  8. ORENITRAM [Suspect]
     Active Substance: TREPROSTINIL
     Dosage: 2 MG, BID
     Route: 048
  9. ORENITRAM [Suspect]
     Active Substance: TREPROSTINIL
     Dosage: 2.25 MG, BID
     Route: 048
  10. AMBRISENTAN [Suspect]
     Active Substance: AMBRISENTAN
     Dosage: 10 MG, DAILY
     Route: 065
     Dates: start: 20140804
  11. ORENITRAM [Suspect]
     Active Substance: TREPROSTINIL
     Dosage: 1.5 MG, EACH EVENING
     Route: 048
  12. ORENITRAM [Suspect]
     Active Substance: TREPROSTINIL
     Indication: PULMONARY ARTERIAL HYPERTENSION
     Dosage: 1.375 MG, BID
     Route: 048
     Dates: start: 20170509

REACTIONS (37)
  - Peripheral swelling [Not Recovered/Not Resolved]
  - Respiration abnormal [Not Recovered/Not Resolved]
  - Diarrhoea [Recovering/Resolving]
  - Wheezing [Unknown]
  - Respiratory disorder [Unknown]
  - Feeling hot [Not Recovered/Not Resolved]
  - Ocular hyperaemia [Unknown]
  - Irritable bowel syndrome [Unknown]
  - Melanocytic naevus [Unknown]
  - Swelling [Not Recovered/Not Resolved]
  - Respiratory tract infection [Unknown]
  - Hot flush [Unknown]
  - Urticaria [Not Recovered/Not Resolved]
  - Diverticulitis [Unknown]
  - Bite [Not Recovered/Not Resolved]
  - Epistaxis [Not Recovered/Not Resolved]
  - Chest discomfort [Not Recovered/Not Resolved]
  - Diarrhoea [Unknown]
  - Dizziness [Not Recovered/Not Resolved]
  - Fluid retention [Recovered/Resolved]
  - Nasal dryness [Unknown]
  - Pruritus [Unknown]
  - Flushing [Unknown]
  - Hypotension [Not Recovered/Not Resolved]
  - Heart rate irregular [Not Recovered/Not Resolved]
  - Blood pressure fluctuation [Not Recovered/Not Resolved]
  - Palpitations [Unknown]
  - Heart rate increased [Recovering/Resolving]
  - Dyspnoea exertional [Not Recovered/Not Resolved]
  - Peripheral coldness [Unknown]
  - Somnolence [Unknown]
  - Muscle spasms [Not Recovered/Not Resolved]
  - Dyschezia [Unknown]
  - Oxygen saturation decreased [Unknown]
  - Chills [Unknown]
  - Abdominal discomfort [Unknown]
  - Blood pressure systolic decreased [Unknown]

NARRATIVE: CASE EVENT DATE: 201707
